FAERS Safety Report 8122323-5 (Version None)
Quarter: 2012Q1

REPORT INFORMATION
  Report Type: 
  Country: None (occurrence: None)
  Receive Date: 20120208
  Receipt Date: 20120201
  Transmission Date: 20120608
  Serious: Yes (Hospitalization)
  Sender: FDA-Public Use
  Company Number: US-US-EMD SERONO, INC.-7110826

PATIENT
  Sex: Female
  Weight: 58 kg

DRUGS (4)
  1. REBIF [Suspect]
     Indication: MULTIPLE SCLEROSIS
     Dates: start: 20090507, end: 20111109
  2. LEVOXYL [Concomitant]
     Indication: HYPOTHYROIDISM
  3. NEURONTIN [Concomitant]
     Indication: MULTIPLE SCLEROSIS
  4. NEURONTIN [Concomitant]
     Indication: PARAESTHESIA

REACTIONS (2)
  - ABORTION SPONTANEOUS [None]
  - FOETAL EXPOSURE DURING PREGNANCY [None]
